FAERS Safety Report 6431092-6 (Version None)
Quarter: 2009Q4

REPORT INFORMATION
  Report Type: 
  Country: None (occurrence: None)
  Receive Date: 20091106
  Receipt Date: 20091029
  Transmission Date: 20100525
  Serious: No
  Sender: FDA-Public Use
  Company Number: B0601483A

PATIENT

DRUGS (1)
  1. RELENZA [Suspect]
     Indication: DRUG USE FOR UNKNOWN INDICATION
     Dosage: 10MG THREE TIMES PER DAY
     Route: 055
     Dates: start: 20091026, end: 20091028

REACTIONS (3)
  - DIARRHOEA [None]
  - OVERDOSE [None]
  - VOMITING [None]
